FAERS Safety Report 5717595-8 (Version None)
Quarter: 2008Q2

REPORT INFORMATION
  Report Type: 
  Country: None (occurrence: None)
  Receive Date: 20080425
  Receipt Date: 20080417
  Transmission Date: 20081010
  Serious: Yes (Other)
  Sender: FDA-Public Use
  Company Number: US-ASTRAZENECA-2008UW07859

PATIENT
  Age: 66 Year
  Sex: Female
  Weight: 97.5 kg

DRUGS (10)
  1. ATACAND [Suspect]
     Indication: BLOOD PRESSURE
     Route: 048
     Dates: start: 20000101
  2. DITROPAN [Concomitant]
  3. ZOLOFT [Concomitant]
  4. BENTYL [Concomitant]
  5. PROTONIX [Concomitant]
  6. BACTRIM [Concomitant]
  7. NIASPAN [Concomitant]
  8. LASIX [Concomitant]
  9. IMODIUM [Concomitant]
  10. ASPIRIN [Concomitant]

REACTIONS (4)
  - DYSPNOEA [None]
  - LOSS OF CONSCIOUSNESS [None]
  - SWELLING FACE [None]
  - URTICARIA [None]
